FAERS Safety Report 5619972-2 (Version None)
Quarter: 2008Q1

REPORT INFORMATION
  Report Type: 
  Country: None (occurrence: None)
  Receive Date: 20080208
  Receipt Date: 20080129
  Transmission Date: 20080703
  Serious: Yes (Death)
  Sender: FDA-Public Use
  Company Number: US-AMGEN-US263159

PATIENT
  Sex: Male

DRUGS (15)
  1. PROCRIT [Suspect]
     Indication: RENAL FAILURE CHRONIC
     Route: 065
  2. CALCITRIOL [Concomitant]
     Dates: start: 20080101
  3. COREG [Concomitant]
  4. NOVOLIN R [Concomitant]
  5. IMDUR [Concomitant]
  6. HYDRALAZINE HCL [Concomitant]
  7. ASPIRIN [Concomitant]
  8. ZOCOR [Concomitant]
  9. NORVASC [Concomitant]
  10. LOPRESSOR [Concomitant]
  11. NOVOLIN 70/30 [Concomitant]
  12. CARDIZEM CD [Concomitant]
  13. LASIX [Concomitant]
  14. LEXAPRO [Concomitant]
  15. ULTRAM [Concomitant]

REACTIONS (1)
  - DEATH [None]
